FAERS Safety Report 9649684 (Version 1)
Quarter: 2013Q4

REPORT INFORMATION
  Report Type: Spontaneous
  Country: GB (occurrence: GB)
  Receive Date: 20131028
  Receipt Date: 20131028
  Transmission Date: 20140711
  Serious: Yes (Life-Threatening, Hospitalization)
  Sender: FDA-Public Use
  Company Number: PHHY2013GB118393

PATIENT
  Age: 75 Year
  Sex: Female
  Weight: 50.8 kg

DRUGS (23)
  1. OLANZAPINE [Suspect]
     Dosage: 5 MG, QD NIGHT
     Route: 048
  2. ADCAL-D3 [Concomitant]
  3. FOLIC ACID [Concomitant]
  4. METFORMIN [Concomitant]
  5. CODEINE [Concomitant]
  6. SIMVASTATIN [Concomitant]
  7. PARACETAMOL [Concomitant]
  8. MIRTAZAPINE [Concomitant]
  9. LOPERAMIDE [Concomitant]
  10. FILGRASTIM [Concomitant]
  11. SANDO K [Concomitant]
  12. TAZOCIN [Concomitant]
  13. DALTEPARIN [Concomitant]
  14. METRONIDAZOLE [Concomitant]
  15. DIAZEPAM [Concomitant]
  16. RANITIDINE [Concomitant]
  17. ALLOPURINOL [Concomitant]
  18. ACICLOVIR [Concomitant]
  19. INFLUENZA VIRUS [Concomitant]
  20. CO-TRIMOXAZOLE [Concomitant]
  21. ONDANSETRON [Concomitant]
  22. TRIMETHOPRIM [Concomitant]
  23. NITROFURANTOIN [Concomitant]

REACTIONS (1)
  - Neutropenic sepsis [Not Recovered/Not Resolved]
